FAERS Safety Report 7477058-9 (Version None)
Quarter: 2011Q2

REPORT INFORMATION
  Report Type: 
  Country: None (occurrence: None)
  Receive Date: 20110512
  Receipt Date: 20110509
  Transmission Date: 20111010
  Serious: Yes (Other)
  Sender: FDA-Public Use
  Company Number: US-MERCK-0810USA04871

PATIENT
  Age: 45 Year
  Sex: Female

DRUGS (7)
  1. VITAMINS (UNSPECIFIED) [Concomitant]
     Route: 065
  2. CHONDROITIN [Concomitant]
     Route: 065
  3. FOSAMAX [Suspect]
     Indication: OSTEOPOROSIS
     Route: 048
     Dates: start: 20031001, end: 20041201
  4. VIOXX [Concomitant]
     Route: 065
  5. GLUCOSAMINE [Concomitant]
     Route: 065
  6. FLAXSEED [Concomitant]
     Route: 065
  7. CALCIUM (UNSPECIFIED) [Concomitant]
     Route: 065

REACTIONS (45)
  - RADICULAR PAIN [None]
  - IMPAIRED FASTING GLUCOSE [None]
  - GASTROINTESTINAL DISORDER [None]
  - BACK PAIN [None]
  - ADVERSE EVENT [None]
  - OSTEONECROSIS [None]
  - CORNEAL ABRASION [None]
  - ROSACEA [None]
  - THIRST [None]
  - OSTEONECROSIS OF JAW [None]
  - EXCORIATION [None]
  - FISTULA [None]
  - ARTHRALGIA [None]
  - ADVERSE DRUG REACTION [None]
  - VISUAL IMPAIRMENT [None]
  - BRONCHITIS [None]
  - BRUXISM [None]
  - PAIN [None]
  - BLOOD GLUCOSE ABNORMAL [None]
  - CONTUSION [None]
  - TEMPOROMANDIBULAR JOINT SYNDROME [None]
  - ORAL CAVITY FISTULA [None]
  - ABDOMINAL DISCOMFORT [None]
  - JOINT EFFUSION [None]
  - ANXIETY [None]
  - ACTINIC KERATOSIS [None]
  - BACTERIAL DISEASE CARRIER [None]
  - BLOOD CHOLESTEROL INCREASED [None]
  - TENDONITIS [None]
  - SYNOVIAL CYST [None]
  - FLANK PAIN [None]
  - DEPRESSION [None]
  - PERIODONTITIS [None]
  - MALAISE [None]
  - PNEUMONIA [None]
  - PAIN IN EXTREMITY [None]
  - NAUSEA [None]
  - LYMPHADENOPATHY [None]
  - BONE LESION [None]
  - OSTEOMYELITIS [None]
  - DIABETES MELLITUS [None]
  - ORAL INFECTION [None]
  - JAW DISORDER [None]
  - METASTATIC NEOPLASM [None]
  - FALL [None]
